FAERS Safety Report 8328349-0 (Version None)
Quarter: 2012Q2

REPORT INFORMATION
  Report Type: 
  Country: None (occurrence: None)
  Receive Date: 20120502
  Receipt Date: 20120424
  Transmission Date: 20120825
  Serious: Yes (Hospitalization)
  Sender: FDA-Public Use
  Company Number: CA-GENZYME-CAMP-1002211

PATIENT
  Sex: Female
  Weight: 88.435 kg

DRUGS (6)
  1. ALEMTUZUMAB [Suspect]
     Indication: MULTIPLE SCLEROSIS
     Dosage: UNK
     Dates: start: 20100628, end: 20100630
  2. ALEMTUZUMAB [Suspect]
     Dosage: UNK
     Dates: start: 20090706, end: 20090708
  3. VENTOLIN [Concomitant]
     Indication: PRODUCT USED FOR UNKNOWN INDICATION
     Dosage: 100 MCG, BID
     Route: 055
     Dates: start: 20120209
  4. TEGRETOL [Concomitant]
     Indication: PRODUCT USED FOR UNKNOWN INDICATION
     Dosage: 200 MG, TID
     Route: 048
     Dates: start: 20111015
  5. METHYLPREDNISOLONE [Concomitant]
     Dosage: 1.0 G, UNK
     Dates: start: 20100628, end: 20100630
  6. METHYLPREDNISOLONE [Concomitant]
     Indication: MULTIPLE SCLEROSIS
     Dosage: 1.0 G, UNK
     Dates: start: 20090706, end: 20090708

REACTIONS (2)
  - NEPHROLITHIASIS [None]
  - FLANK PAIN [None]
